FAERS Safety Report 9571191 (Version 1)
Quarter: 2013Q4

REPORT INFORMATION
  Report Type: Report from Study
  Country: AU (occurrence: AU)
  Receive Date: 20131001
  Receipt Date: 20131001
  Transmission Date: 20140711
  Serious: Yes (Hospitalization)
  Sender: FDA-Public Use
  Company Number: PHHY2013AU109124

PATIENT
  Age: 90 Year
  Sex: Male

DRUGS (3)
  1. ACLASTA [Suspect]
     Dosage: 5 MG, UNK
     Route: 042
     Dates: start: 20120824
  2. HEPARIN [Concomitant]
     Dosage: UNK UKN, UNK
     Dates: end: 20130923
  3. ASPIRIN [Concomitant]
     Dosage: UNK UKN, UNK

REACTIONS (2)
  - Cerebrovascular accident [Recovering/Resolving]
  - Limb discomfort [Recovering/Resolving]
